FAERS Safety Report 17223377 (Version 1)
Quarter: 2020Q1

REPORT INFORMATION
  Report Type: Report from Study
  Country: None (occurrence: DE)
  Receive Date: 20200102
  Receipt Date: 20200102
  Transmission Date: 20200409
  Serious: Yes (Other)
  Sender: FDA-Public Use
  Company Number: DE-ABBVIE-18P-062-2319262-00

PATIENT
  Age: 85 Year
  Sex: Male
  Weight: 65 kg

DRUGS (5)
  1. VENCLYXTO [Suspect]
     Active Substance: VENETOCLAX
     Indication: CHRONIC LYMPHOCYTIC LEUKAEMIA
     Route: 048
     Dates: start: 20180307, end: 20180313
  2. VENCLYXTO [Suspect]
     Active Substance: VENETOCLAX
     Route: 048
     Dates: start: 20180314, end: 20180320
  3. METFORMIN [Concomitant]
     Active Substance: METFORMIN HYDROCHLORIDE
     Indication: PRODUCT USED FOR UNKNOWN INDICATION
     Route: 048
  4. VENCLYXTO [Suspect]
     Active Substance: VENETOCLAX
     Route: 048
     Dates: start: 20180321, end: 20180327
  5. VENCLYXTO [Suspect]
     Active Substance: VENETOCLAX
     Route: 048
     Dates: start: 20180405

REACTIONS (6)
  - Urinary incontinence [Unknown]
  - Richter^s syndrome [Unknown]
  - Neutropenia [Recovered/Resolved]
  - Lymphadenopathy [Recovered/Resolved]
  - Neutropenia [Recovered/Resolved]
  - Neutropenia [Recovered/Resolved]

NARRATIVE: CASE EVENT DATE: 20180321
